FAERS Safety Report 5672906-7 (Version None)
Quarter: 2008Q1

REPORT INFORMATION
  Report Type: 
  Country: None (occurrence: None)
  Receive Date: 20080319
  Receipt Date: 20080311
  Transmission Date: 20080703
  Serious: Yes (Other)
  Sender: FDA-Public Use
  Company Number: A0710292A

PATIENT
  Age: 27 Year
  Sex: Female
  Weight: 52.3 kg

DRUGS (4)
  1. AVAMYS [Suspect]
     Route: 045
     Dates: start: 20071108, end: 20071119
  2. NASONEX [Concomitant]
     Dates: start: 20061108, end: 20071108
  3. ADVAIR DISKUS 100/50 [Concomitant]
     Indication: ASTHMA
     Route: 055
  4. SINGULAIR [Concomitant]
     Indication: ASTHMA
     Route: 048

REACTIONS (8)
  - ACNE [None]
  - BURNING SENSATION [None]
  - CELLULITIS [None]
  - DRUG INTOLERANCE [None]
  - ERYTHEMA [None]
  - HYPERSENSITIVITY [None]
  - NASAL OEDEMA [None]
  - RASH [None]
